FAERS Safety Report 6291616-9 (Version None)
Quarter: 2009Q3

REPORT INFORMATION
  Report Type: 
  Country: None (occurrence: None)
  Receive Date: 20090730
  Receipt Date: 20090723
  Transmission Date: 20100115
  Serious: Yes (Hospitalization)
  Sender: FDA-Public Use
  Company Number: US-GILEAD-2009-0022526

PATIENT
  Sex: Female
  Weight: 60.382 kg

DRUGS (22)
  1. LETAIRIS [Suspect]
     Indication: PULMONARY ARTERIAL HYPERTENSION
     Route: 048
     Dates: start: 20080806
  2. COUMADIN [Concomitant]
  3. NORVASC [Concomitant]
  4. FUROSEMIDE [Concomitant]
  5. HYDROCHLOROTHIAZIDE [Concomitant]
  6. ALBUTEROL [Concomitant]
  7. VENTOLIN [Concomitant]
  8. ADVAIR HFA [Concomitant]
  9. ATROVENT [Concomitant]
  10. PROTONIX [Concomitant]
  11. SOLU-MEDROL [Concomitant]
  12. PREDNISONE TAB [Concomitant]
  13. SEPTRA DS [Concomitant]
  14. ZOSYN [Concomitant]
  15. VALIUM [Concomitant]
  16. MUCINEX [Concomitant]
  17. MULTI-VITAMINS [Concomitant]
  18. COLACE [Concomitant]
  19. CALCIUM +D [Concomitant]
  20. IRON [Concomitant]
  21. TYLENOL (CAPLET) [Concomitant]
  22. ZYRTEC [Concomitant]

REACTIONS (4)
  - HYPOXIA [None]
  - RIGHT VENTRICULAR FAILURE [None]
  - SARCOIDOSIS [None]
  - VIRAL INFECTION [None]
